FAERS Safety Report 13784657 (Version 3)
Quarter: 2017Q4

REPORT INFORMATION
  Report Type: Spontaneous
  Country: US (occurrence: US)
  Receive Date: 20170725
  Receipt Date: 20171030
  Transmission Date: 20180320
  Serious: No
  Sender: FDA-Public Use
  Company Number: US-PFIZER INC-2017239533

PATIENT
  Age: 74 Year
  Sex: Female

DRUGS (8)
  1. ASPIRIN. [Concomitant]
     Active Substance: ASPIRIN
     Indication: THROMBOSIS PROPHYLAXIS
     Dosage: 81 MG, 1X/DAY
     Route: 048
     Dates: start: 201406, end: 20161208
  2. IBRANCE [Suspect]
     Active Substance: PALBOCICLIB
     Indication: BREAST CANCER METASTATIC
     Dosage: 75 MG, DAILY
     Dates: start: 201610
  3. FASLODEX [Concomitant]
     Active Substance: FULVESTRANT
     Indication: CHEMOTHERAPY
     Dosage: 500 MG, CYCLIC (500 MG IM Q28 DAYS)
     Route: 030
     Dates: start: 20161014
  4. WARFARIN [Concomitant]
     Active Substance: WARFARIN
     Indication: THROMBOSIS
     Dosage: 4 MG, 1X/DAY (4 MG PO QDAY)
     Route: 048
     Dates: start: 201411
  5. FERROUS SULFATE. [Concomitant]
     Active Substance: FERROUS SULFATE
     Indication: SUPPLEMENTATION THERAPY
     Dosage: 325 MG, 1X/DAY (325 MG PO QD)
     Route: 048
     Dates: start: 201610
  6. CALCIUM + D3 [Concomitant]
     Active Substance: CALCIUM\CHOLECALCIFEROL
     Indication: SUPPLEMENTATION THERAPY
     Dosage: 1X/DAY (2000 IU D3/ 1000 MG CALCIUM Q DAY)
     Dates: start: 201606
  7. XGEVA [Concomitant]
     Active Substance: DENOSUMAB
     Indication: CHEMOTHERAPY
     Dosage: 120 MG, CYCLIC (120 MG SQ Q 28 DAYS)
     Route: 058
     Dates: start: 20161014
  8. IBRANCE [Suspect]
     Active Substance: PALBOCICLIB
     Dosage: 100 MG, CYCLIC (100 MG 21 DAYS ON/ 7 DAYS OFF)
     Route: 048
     Dates: start: 20161014, end: 20170519

REACTIONS (3)
  - Herpes simplex [Recovered/Resolved]
  - Stomatitis [Recovered/Resolved]
  - Candida infection [Recovered/Resolved]

NARRATIVE: CASE EVENT DATE: 20170427
